FAERS Safety Report 10659100 (Version 4)
Quarter: 2015Q1

REPORT INFORMATION
  Report Type: Spontaneous
  Country: JP (occurrence: JP)
  Receive Date: 20141217
  Receipt Date: 20150204
  Transmission Date: 20150720
  Serious: Yes (Life-Threatening)
  Sender: FDA-Public Use
  Company Number: JP-SA-2014SA172170

PATIENT
  Age: 5 Month
  Sex: Male
  Weight: 4.75 kg

DRUGS (32)
  1. LASIX [Suspect]
     Active Substance: FUROSEMIDE
     Indication: VENTRICULAR SEPTAL DEFECT
     Route: 048
     Dates: start: 20140403, end: 20140430
  2. LASIX [Suspect]
     Active Substance: FUROSEMIDE
     Indication: VENTRICULAR SEPTAL DEFECT
     Route: 048
     Dates: start: 20140529
  3. SPIRONOLACTONE. [Suspect]
     Active Substance: SPIRONOLACTONE
     Indication: VENTRICULAR SEPTAL DEFECT
     Route: 048
     Dates: start: 20131227, end: 20140402
  4. PHENOBARBITAL. [Concomitant]
     Active Substance: PHENOBARBITAL
     Indication: SEIZURE
  5. ENALAPRIL MALEATE. [Suspect]
     Active Substance: ENALAPRIL MALEATE
     Indication: VENTRICULAR SEPTAL DEFECT
     Route: 048
     Dates: start: 20140307, end: 20140313
  6. ENALAPRIL MALEATE. [Suspect]
     Active Substance: ENALAPRIL MALEATE
     Indication: VENTRICULAR SEPTAL DEFECT
     Route: 048
     Dates: start: 20140327, end: 20140331
  7. LASIX [Suspect]
     Active Substance: FUROSEMIDE
     Indication: VENTRICULAR SEPTAL DEFECT
     Route: 048
     Dates: start: 20131227, end: 20140402
  8. LASIX [Suspect]
     Active Substance: FUROSEMIDE
     Indication: CARDIAC FAILURE
     Route: 048
     Dates: start: 20131227, end: 20140402
  9. SPIRONOLACTONE. [Suspect]
     Active Substance: SPIRONOLACTONE
     Indication: VENTRICULAR SEPTAL DEFECT
     Route: 048
     Dates: start: 20140501, end: 20140519
  10. LASIX [Suspect]
     Active Substance: FUROSEMIDE
     Indication: CARDIAC FAILURE
     Route: 048
     Dates: start: 20140501, end: 20140519
  11. SPIRONOLACTONE. [Suspect]
     Active Substance: SPIRONOLACTONE
     Indication: CARDIAC FAILURE
     Route: 048
     Dates: start: 20140529
  12. SPIRONOLACTONE. [Suspect]
     Active Substance: SPIRONOLACTONE
     Indication: CARDIAC FAILURE
     Route: 048
     Dates: start: 20131227, end: 20140402
  13. SPIRONOLACTONE. [Suspect]
     Active Substance: SPIRONOLACTONE
     Indication: CARDIAC FAILURE
     Route: 048
     Dates: start: 20140501, end: 20140519
  14. SPIRONOLACTONE. [Suspect]
     Active Substance: SPIRONOLACTONE
     Indication: VENTRICULAR SEPTAL DEFECT
     Route: 048
     Dates: start: 20140403, end: 20140430
  15. ENALAPRIL MALEATE. [Suspect]
     Active Substance: ENALAPRIL MALEATE
     Indication: CARDIAC FAILURE
     Route: 048
     Dates: start: 20140228, end: 20140306
  16. ENALAPRIL MALEATE. [Suspect]
     Active Substance: ENALAPRIL MALEATE
     Indication: CARDIAC FAILURE
     Route: 048
     Dates: start: 20140314, end: 20140319
  17. ENALAPRIL MALEATE. [Suspect]
     Active Substance: ENALAPRIL MALEATE
     Indication: CARDIAC FAILURE
     Route: 048
     Dates: start: 20140131, end: 20140227
  18. ENALAPRIL MALEATE. [Suspect]
     Active Substance: ENALAPRIL MALEATE
     Indication: CARDIAC FAILURE
     Route: 048
     Dates: start: 20140307, end: 20140313
  19. ENALAPRIL MALEATE. [Suspect]
     Active Substance: ENALAPRIL MALEATE
     Indication: VENTRICULAR SEPTAL DEFECT
     Route: 048
     Dates: start: 20140314, end: 20140319
  20. ENALAPRIL MALEATE. [Suspect]
     Active Substance: ENALAPRIL MALEATE
     Indication: CARDIAC FAILURE
     Route: 048
     Dates: start: 20140320, end: 20140326
  21. ENALAPRIL MALEATE. [Suspect]
     Active Substance: ENALAPRIL MALEATE
     Indication: CARDIAC FAILURE
     Route: 048
     Dates: start: 20140327, end: 20140331
  22. LASIX [Suspect]
     Active Substance: FUROSEMIDE
     Indication: CARDIAC FAILURE
     Route: 048
     Dates: start: 20140403, end: 20140430
  23. LASIX [Suspect]
     Active Substance: FUROSEMIDE
     Indication: VENTRICULAR SEPTAL DEFECT
     Route: 048
     Dates: start: 20140501, end: 20140519
  24. SPIRONOLACTONE. [Suspect]
     Active Substance: SPIRONOLACTONE
     Indication: VENTRICULAR SEPTAL DEFECT
     Route: 048
     Dates: start: 20140529
  25. SPIRONOLACTONE. [Suspect]
     Active Substance: SPIRONOLACTONE
     Indication: CARDIAC FAILURE
     Route: 048
     Dates: start: 20140403, end: 20140430
  26. ENALAPRIL MALEATE. [Suspect]
     Active Substance: ENALAPRIL MALEATE
     Indication: VENTRICULAR SEPTAL DEFECT
     Route: 048
     Dates: start: 20140320, end: 20140326
  27. ENALAPRIL MALEATE. [Suspect]
     Active Substance: ENALAPRIL MALEATE
     Indication: VENTRICULAR SEPTAL DEFECT
     Route: 048
     Dates: start: 20140131, end: 20140227
  28. ENALAPRIL MALEATE. [Suspect]
     Active Substance: ENALAPRIL MALEATE
     Indication: VENTRICULAR SEPTAL DEFECT
     Route: 048
     Dates: start: 20140228, end: 20140306
  29. LASIX [Suspect]
     Active Substance: FUROSEMIDE
     Indication: CARDIAC FAILURE
     Route: 048
     Dates: start: 20140529
  30. ENALAPRIL MALEATE. [Suspect]
     Active Substance: ENALAPRIL MALEATE
     Indication: VENTRICULAR SEPTAL DEFECT
     Route: 048
     Dates: start: 20140401, end: 20140519
  31. ENALAPRIL MALEATE. [Suspect]
     Active Substance: ENALAPRIL MALEATE
     Indication: CARDIAC FAILURE
     Route: 048
     Dates: start: 20140401, end: 20140519
  32. SODIUM CHLORIDE. [Concomitant]
     Active Substance: SODIUM CHLORIDE

REACTIONS (12)
  - Acute kidney injury [Recovered/Resolved]
  - Hyperkalaemia [Recovered/Resolved]
  - Product use issue [Unknown]
  - Blood creatinine increased [Recovered/Resolved]
  - Glucose urine present [Recovered/Resolved]
  - Blood urea increased [Recovered/Resolved]
  - Proteinuria [Recovered/Resolved]
  - Blood osmolarity decreased [Recovered/Resolved]
  - Dehydration [Recovered/Resolved]
  - Anuria [Recovered/Resolved]
  - Hyponatraemia [Recovered/Resolved]
  - Anion gap increased [Recovered/Resolved]

NARRATIVE: CASE EVENT DATE: 20140519
